FAERS Safety Report 9476816 (Version 1)
Quarter: 2013Q3

REPORT INFORMATION
  Report Type: Spontaneous
  Country: US (occurrence: US)
  Receive Date: 20130826
  Receipt Date: 20130826
  Transmission Date: 20140515
  Serious: No
  Sender: FDA-Public Use
  Company Number: US-TARO-2013P1006701

PATIENT
  Age: 54 Year
  Sex: Female
  Weight: 72.58 kg

DRUGS (2)
  1. CLOBETASOL PROPIONATE OINTMENT USP 0.05% [Suspect]
     Indication: PSORIASIS
     Route: 061
     Dates: start: 2007, end: 2013
  2. CLOBETASOL PROPIONATE OINTMENT USP 0.05% [Suspect]
     Indication: ECZEMA
     Route: 061
     Dates: start: 2007, end: 2013

REACTIONS (2)
  - Application site discolouration [Not Recovered/Not Resolved]
  - Weight decreased [Not Recovered/Not Resolved]
